FAERS Safety Report 12529074 (Version 2)
Quarter: 2016Q3

REPORT INFORMATION
  Report Type: Spontaneous
  Country: US (occurrence: US)
  Receive Date: 20160705
  Receipt Date: 20160711
  Transmission Date: 20161109
  Serious: No
  Sender: FDA-Public Use
  Company Number: US-BAYER-2016-124184

PATIENT
  Age: 52 Year
  Sex: Male
  Weight: 79.37 kg

DRUGS (1)
  1. ALEVE [Suspect]
     Active Substance: NAPROXEN SODIUM
     Dosage: 4 DF, TID
     Route: 048
     Dates: start: 20160622, end: 20160622

REACTIONS (10)
  - Hyperhidrosis [Recovered/Resolved]
  - Product use issue [None]
  - Vomiting [Recovered/Resolved]
  - Palpitations [Recovered/Resolved]
  - Feeling abnormal [None]
  - Anxiety [Recovered/Resolved]
  - Heart rate increased [Recovered/Resolved]
  - Product use issue [None]
  - Dizziness [Recovered/Resolved]
  - Palpitations [Not Recovered/Not Resolved]

NARRATIVE: CASE EVENT DATE: 20160622
